FAERS Safety Report 12803137 (Version 2)
Quarter: 2016Q4

REPORT INFORMATION
  Report Type: Spontaneous
  Country: PL (occurrence: PL)
  Receive Date: 20161003
  Receipt Date: 20161108
  Transmission Date: 20170207
  Serious: Yes (Other)
  Sender: FDA-Public Use
  Company Number: PL-SYMPLMED PHARMACEUTICALS-2016SYMPLMED000327

PATIENT

DRUGS (11)
  1. ACARD [Concomitant]
     Active Substance: ASPIRIN
     Indication: PROPHYLAXIS
     Dosage: 75 MG, QD
     Route: 048
     Dates: start: 201510
  2. SUVARDIO [Concomitant]
     Active Substance: ROSUVASTATIN CALCIUM
     Indication: PROPHYLAXIS
     Dosage: 10 MG, QD
     Route: 048
     Dates: start: 201510
  3. EMANERA [Concomitant]
     Indication: PROPHYLAXIS AGAINST GASTROINTESTINAL ULCER
     Dosage: 20 MG, QD
     Dates: start: 201510
  4. PRESTARIUM [Suspect]
     Active Substance: PERINDOPRIL
     Dosage: 2.5 MG, QD
     Route: 065
     Dates: start: 201510, end: 20160923
  5. GLUCOPHAGE [Concomitant]
     Active Substance: METFORMIN HYDROCHLORIDE
     Indication: TYPE 2 DIABETES MELLITUS
     Dosage: 750 MG, QD
     Route: 048
     Dates: start: 201510
  6. PRESTARIUM [Suspect]
     Active Substance: PERINDOPRIL
     Dosage: 5 MG, QD
     Route: 048
     Dates: start: 20160923
  7. NEDAL [Concomitant]
     Indication: MYOCARDIAL ISCHAEMIA
     Dosage: 5 MG, QD
     Route: 048
     Dates: start: 201510
  8. ACARD [Concomitant]
     Active Substance: ASPIRIN
     Indication: PROPHYLAXIS
  9. PLAVIX [Concomitant]
     Active Substance: CLOPIDOGREL BISULFATE
     Indication: PROPHYLAXIS
     Dosage: 75 MG, QD
     Route: 048
     Dates: start: 201510
  10. PLAVIX [Concomitant]
     Active Substance: CLOPIDOGREL BISULFATE
     Indication: PROPHYLAXIS
  11. PRESTARIUM [Suspect]
     Active Substance: PERINDOPRIL
     Indication: MYOCARDIAL ISCHAEMIA
     Dosage: 5 MG, QD
     Route: 048
     Dates: start: 201510, end: 201510

REACTIONS (4)
  - Blood pressure increased [Recovered/Resolved]
  - Heart rate decreased [Not Recovered/Not Resolved]
  - Angina pectoris [Recovered/Resolved]
  - Anxiety [Recovered/Resolved]

NARRATIVE: CASE EVENT DATE: 201510
